FAERS Safety Report 5894586-8 (Version None)
Quarter: 2008Q3

REPORT INFORMATION
  Report Type: 
  Country: None (occurrence: None)
  Receive Date: 20080922
  Receipt Date: 20080917
  Transmission Date: 20090109
  Serious: Yes (Death, Life-Threatening, Disabling)
  Sender: FDA-Public Use
  Company Number: 2008AL006725

PATIENT
  Age: 88 Year
  Sex: Female
  Weight: 43.0917 kg

DRUGS (7)
  1. DIGOXIN [Suspect]
     Dosage: 0.25MG, DAILY, PO
     Route: 048
  2. COUMADIN [Concomitant]
  3. DILTIAZEM HCL [Concomitant]
  4. LASIX [Concomitant]
  5. METOPROLOL SUCCINATE [Concomitant]
  6. NITROGLYCERIN [Concomitant]
  7. RESTORIL [Concomitant]

REACTIONS (1)
  - HEART RATE INCREASED [None]
